FAERS Safety Report 8758583 (Version 1)
Quarter: 2012Q4

REPORT INFORMATION
  Report Type: Spontaneous
  Country: US (occurrence: None)
  Receive Date: 20120828
  Receipt Date: 20120828
  Transmission Date: 20130627
  Serious: Yes (Death)
  Sender: FDA-Public Use
  Company Number: None

PATIENT
  Age: 68 Year
  Sex: Male
  Weight: 90.72 kg

DRUGS (1)
  1. HUMIRA [Suspect]

REACTIONS (5)
  - Convulsion [None]
  - Cerebrovascular accident [None]
  - Status epilepticus [None]
  - Pulmonary thrombosis [None]
  - Nervous system disorder [None]
